FAERS Safety Report 9822779 (Version 5)
Quarter: 2014Q1

REPORT INFORMATION
  Report Type: Report from Study
  Country: IT (occurrence: IT)
  Receive Date: 20140116
  Receipt Date: 20140319
  Transmission Date: 20141002
  Serious: Yes (Death, Hospitalization)
  Sender: FDA-Public Use
  Company Number: IT-EXELIXIS-XL18413003857

PATIENT
  Age: 61 Year
  Sex: Male

DRUGS (9)
  1. XL184 [Suspect]
     Indication: PROSTATE CANCER
     Dosage: 60 MG, QD
     Route: 048
     Dates: start: 20130805
  2. XL184 [Suspect]
     Indication: PROSTATE CANCER
     Dosage: 5 MG, BID
     Route: 048
     Dates: start: 20130805
  3. RAPID INSULIN [Concomitant]
  4. LANTUS [Concomitant]
  5. LANSOX [Concomitant]
  6. TARGIN [Concomitant]
  7. ENTACT [Concomitant]
  8. EUTIROX [Concomitant]
  9. PECFENT [Concomitant]

REACTIONS (3)
  - Gastrointestinal obstruction [Recovered/Resolved]
  - General physical health deterioration [Not Recovered/Not Resolved]
  - Cerebral haemorrhage [Fatal]
